FAERS Safety Report 18812242 (Version 1)
Quarter: 2021Q1

REPORT INFORMATION
  Report Type: Spontaneous
  Country: IN (occurrence: IN)
  Receive Date: 20210130
  Receipt Date: 20210130
  Transmission Date: 20210419
  Serious: Yes (Other)
  Sender: FDA-Public Use
  Company Number: IN-MACLEODS PHARMACEUTICALS US LTD-MAC2021029897

PATIENT

DRUGS (6)
  1. TRAMADOL. [Suspect]
     Active Substance: TRAMADOL
     Indication: ANXIETY
     Dosage: 2 MILLILITER, 50 MG/ML INJECTION
     Route: 042
  2. TRAMADOL. [Suspect]
     Active Substance: TRAMADOL
     Dosage: 100 MILLIGRAM, ONE NIGHT, SHE TRIED TO INJECT HERSELFED, 50 MG/ML INJECTION
     Route: 042
  3. TRAMADOL. [Suspect]
     Active Substance: TRAMADOL
     Dosage: 100 MILLIGRAM, FOR FEW DAYS, AS NEEDED, 50 MG/ML INJECTION
     Route: 042
  4. TRAMADOL. [Suspect]
     Active Substance: TRAMADOL
     Dosage: 400 MILLIGRAM, 50 MG/ML INJECTION
     Route: 042
  5. TRAMADOL. [Suspect]
     Active Substance: TRAMADOL
     Dosage: 200 MILLIGRAM, REDUCED, 50 MG/ML INJECTION
     Route: 042
  6. TRAMADOL. [Suspect]
     Active Substance: TRAMADOL
     Indication: ABDOMINAL PAIN UPPER
     Dosage: 2100 MILLIGRAM, QD, 50 MG/ML INJECTION
     Route: 042

REACTIONS (25)
  - Confusional state [Recovered/Resolved]
  - Insomnia [Unknown]
  - Tonic clonic movements [Recovered/Resolved]
  - Injection site induration [Unknown]
  - Disturbance in social behaviour [Unknown]
  - Mental disorder [Unknown]
  - Bruxism [Recovered/Resolved]
  - Behaviour disorder [Unknown]
  - Pain [Unknown]
  - Self-medication [Unknown]
  - Injection site ulcer [Unknown]
  - Fatigue [Unknown]
  - Cellulitis [Unknown]
  - Drug dependence [Unknown]
  - General physical health deterioration [Unknown]
  - Unresponsive to stimuli [Recovered/Resolved]
  - Helplessness [Unknown]
  - Drug withdrawal syndrome [Unknown]
  - Headache [Unknown]
  - Intentional product misuse [Unknown]
  - Impaired work ability [Unknown]
  - Depressed mood [Unknown]
  - Toxicity to various agents [Unknown]
  - Irritability [Unknown]
  - Restlessness [Unknown]
